FAERS Safety Report 7580589-4 (Version None)
Quarter: 2011Q2

REPORT INFORMATION
  Report Type: 
  Country: None (occurrence: None)
  Receive Date: 20110629
  Receipt Date: 20110622
  Transmission Date: 20111010
  Serious: Yes (Hospitalization)
  Sender: FDA-Public Use
  Company Number: B0714001A

PATIENT
  Sex: Female
  Weight: 62 kg

DRUGS (4)
  1. NOCERTONE [Concomitant]
     Indication: MIGRAINE
     Dosage: 2UNIT PER DAY
     Route: 048
     Dates: start: 20110401, end: 20110430
  2. SUMATRIPTAN SUCCINATE [Suspect]
     Indication: CLUSTER HEADACHE
     Dosage: 2INJ PER DAY
     Route: 058
     Dates: start: 20110416, end: 20110416
  3. CELEBREX [Concomitant]
     Indication: MIGRAINE
     Route: 048
     Dates: start: 20110401, end: 20110430
  4. SUMATRIPTAN SUCCINATE [Suspect]
     Indication: MIGRAINE
     Dosage: 50MG SINGLE DOSE
     Route: 048
     Dates: start: 20110416, end: 20110416

REACTIONS (5)
  - FACIAL PAIN [None]
  - TRISMUS [None]
  - MONOPLEGIA [None]
  - MIGRAINE [None]
  - APHASIA [None]
